FAERS Safety Report 11881380 (Version 1)
Quarter: 2015Q4

REPORT INFORMATION
  Report Type: Spontaneous
  Country: US (occurrence: US)
  Receive Date: 20151231
  Receipt Date: 20151231
  Transmission Date: 20160305
  Serious: No
  Sender: FDA-Public Use
  Company Number: US-009507513-1512USA011359

PATIENT
  Sex: Female
  Weight: 81.63 kg

DRUGS (1)
  1. NUVARING [Suspect]
     Active Substance: ETHINYL ESTRADIOL\ETONOGESTREL
     Indication: CONTRACEPTION
     Dosage: 1 DF, QM (3 WEEKS IN AND 1 WEEK REMOVAL)
     Route: 067
     Dates: start: 201509

REACTIONS (3)
  - Inappropriate schedule of drug administration [Unknown]
  - Abdominal distension [Unknown]
  - Muscle spasms [Unknown]

NARRATIVE: CASE EVENT DATE: 2015
